FAERS Safety Report 8466574 (Version 4)
Quarter: 2012Q4

REPORT INFORMATION
  Report Type: Report from Study
  Country: JP (occurrence: JP)
  Receive Date: 20120319
  Receipt Date: 20121106
  Transmission Date: 20130627
  Serious: Yes (Death, Hospitalization)
  Sender: FDA-Public Use
  Company Number: JP-PFIZER INC-2012066685

PATIENT
  Age: 43 Year
  Sex: Male
  Weight: 41.8 kg

DRUGS (14)
  1. SILDENAFIL CITRATE [Suspect]
     Indication: PULMONARY VENO-OCCLUSIVE DISEASE
     Dosage: 20 mg, 2x/day
     Route: 048
     Dates: start: 20080821, end: 20080821
  2. SILDENAFIL CITRATE [Suspect]
     Indication: PULMONARY HYPERTENSION
     Dosage: 10 mg, 4x/day
     Route: 048
     Dates: start: 20080822, end: 20081024
  3. SILDENAFIL CITRATE [Suspect]
     Dosage: 20 mg, 3x/day
     Route: 048
     Dates: start: 20081025
  4. TRACLEER [Concomitant]
     Indication: PULMONARY HYPERTENSION
     Dosage: 62.5 mg, 2x/day
     Route: 048
  5. GLIVEC [Concomitant]
     Indication: PULMONARY HYPERTENSION
     Dosage: 150 mg, 1x/day
     Route: 048
     Dates: start: 20080822
  6. LANSOPRAZOLE [Concomitant]
     Indication: PROPHYLAXIS
     Dosage: 15 mg, 1x/day
     Route: 048
  7. MUCOSTA [Concomitant]
     Indication: PROPHYLAXIS
     Dosage: 100 mg, 3x/day
     Route: 048
  8. FLUITRAN [Concomitant]
     Indication: RIGHT HEART FAILURE
     Dosage: 2 mg, 1x/day
     Route: 048
  9. ALDACTONE-A [Concomitant]
     Indication: RIGHT HEART FAILURE
     Dosage: 50 mg, 1x/day
     Route: 048
  10. ASPARA K [Concomitant]
     Indication: HYPOKALAEMIA
     Dosage: 600 mg, 3x/day
     Route: 048
     Dates: start: 20080825
  11. ALLOPURINOL [Concomitant]
     Indication: HYPERURICAEMIA
     Dosage: 100 mg, 2x/day
     Route: 048
     Dates: start: 20080826
  12. ACARDI [Concomitant]
     Indication: RIGHT HEART FAILURE
     Dosage: UNK
     Route: 048
     Dates: start: 20080828
  13. URSO [Concomitant]
     Indication: PROPHYLAXIS
     Dosage: 100 mg, 3x/day
     Route: 048
     Dates: start: 20080913
  14. BERASUS [Concomitant]
     Indication: PULMONARY HYPERTENSION
     Dosage: 60 ug, 3x/day
     Route: 048
     Dates: start: 20081019

REACTIONS (1)
  - Cardiac failure [Fatal]
